FAERS Safety Report 9991199 (Version 4)
Quarter: 2014Q2

REPORT INFORMATION
  Report Type: Report from Study
  Country: FR (occurrence: FR)
  Receive Date: 20140310
  Receipt Date: 20140429
  Transmission Date: 20141212
  Serious: Yes (Hospitalization)
  Sender: FDA-Public Use
  Company Number: FR-PFIZER INC-2014056527

PATIENT
  Age: 77 Year
  Sex: Male

DRUGS (1)
  1. RAPAMUNE [Suspect]
     Dosage: 1 MG, DAILY
     Dates: start: 20090310

REACTIONS (1)
  - Amyloidosis [Not Recovered/Not Resolved]
